FAERS Safety Report 8465597-3 (Version None)
Quarter: 2012Q2

REPORT INFORMATION
  Report Type: 
  Country: None (occurrence: None)
  Receive Date: 20120619
  Receipt Date: 20120606
  Transmission Date: 20120825
  Serious: Yes (Life-Threatening)
  Sender: FDA-Public Use
  Company Number: JP-2012-15423

PATIENT
  Age: 62 Year
  Sex: Male
  Weight: 58 kg

DRUGS (13)
  1. PLETAL [Suspect]
     Indication: MYOCARDIAL INFARCTION
     Dosage: 50 MG MILLIGRAM(S), BID, ORAL
     Route: 048
     Dates: start: 20120409, end: 20120416
  2. ATORVASTATIN CALCIUM [Concomitant]
  3. CAPTOPRIL [Concomitant]
  4. CARVEDILOL [Concomitant]
  5. ACETAMINOPHEN [Concomitant]
  6. ALPRAZOLAM [Concomitant]
  7. AMIODARONE HCL [Concomitant]
  8. PLAVIX [Suspect]
     Indication: MYOCARDIAL INFARCTION
     Dosage: 75 MG MILLIGRAM(S), QD, ORAL
     Route: 048
     Dates: start: 20120409, end: 20120416
  9. AMOXYCILLIN+CALVULANIC ACID (AMOXYCILLIN+CLAVULANIC ACID) [Concomitant]
  10. FAMOTIDINE [Concomitant]
  11. TOLTERODINE TARTRA (TOLTERODINE I-TARTRATE) [Concomitant]
  12. NICERGOLIN (NICERGOLINE) [Concomitant]
  13. SENNOSIDE (SENNOSIDE) [Concomitant]

REACTIONS (7)
  - PYREXIA [None]
  - ASTHENIA [None]
  - HAEMORRHAGE INTRACRANIAL [None]
  - DECREASED APPETITE [None]
  - HEADACHE [None]
  - ALTERED STATE OF CONSCIOUSNESS [None]
  - ANURIA [None]
